FAERS Safety Report 6177576-X (Version None)
Quarter: 2009Q2

REPORT INFORMATION
  Report Type: 
  Country: None (occurrence: None)
  Receive Date: 20090501
  Receipt Date: 20090501
  Transmission Date: 20091009
  Serious: Yes (Hospitalization)
  Sender: FDA-Public Use
  Company Number: None

PATIENT
  Age: 41 Year
  Sex: Male
  Weight: 99 kg

DRUGS (2)
  1. VANCOMYCIN HCL [Suspect]
     Indication: STAPHYLOCOCCAL BACTERAEMIA
     Dosage: 1500MG IV BID  (DURATION: A FEW WEEKS)
     Route: 042
  2. METOPROLOL [Concomitant]

REACTIONS (1)
  - PYREXIA [None]
